FAERS Safety Report 15145494 (Version 1)
Quarter: 2018Q3

REPORT INFORMATION
  Report Type: Report from Study
  Country: ES (occurrence: ES)
  Receive Date: 20180713
  Receipt Date: 20180713
  Transmission Date: 20181010
  Serious: Yes (Hospitalization)
  Sender: FDA-Public Use
  Company Number: ES-TEVA-2018-ES-925908

PATIENT
  Age: 60 Year
  Sex: Female

DRUGS (7)
  1. NOVORAPID 100 U/ML SOLUCION INYECTABLE EN VIAL, 1 VIAL DE 10 ML [Concomitant]
     Indication: INSULIN-REQUIRING TYPE 2 DIABETES MELLITUS
     Dosage: 30 IU (INTERNATIONAL UNIT) DAILY; 8?8?14 AL ALTA 12?12?14
     Route: 058
  2. NITRENDIPINO (2048A) [Concomitant]
     Route: 048
  3. LOSARTAN (7157A) [Concomitant]
     Active Substance: LOSARTAN
     Indication: HYPERTENSION
     Dosage: 50 MILLIGRAM DAILY;
     Route: 048
  4. SIMVASTATINA (1023A) [Concomitant]
     Active Substance: SIMVASTATIN
     Dosage: 20 MILLIGRAM DAILY;
     Route: 048
  5. CIPROFLOXACINO (2049A [Suspect]
     Active Substance: CIPROFLOXACIN
     Indication: GASTROENTERITIS
     Route: 048
     Dates: start: 20170925, end: 20171002
  6. EUTIROX 50 MICROGRAMOS COMPRIMIDOS , 100 COMPRIMIDOS [Concomitant]
     Dosage: 50 MICROGRAM DAILY;
     Route: 048
  7. LEVEMIR 100 U/ML, SOLUCION INYECTABLE EN UNA PLUMA PRECARGADA (FLEXPEN [Concomitant]
     Indication: INSULIN-REQUIRING TYPE 2 DIABETES MELLITUS
     Dosage: 18 IU (INTERNATIONAL UNIT) DAILY; 0?0?18, AL ALTA 0?0?28
     Route: 058

REACTIONS (1)
  - Mixed liver injury [Recovered/Resolved]

NARRATIVE: CASE EVENT DATE: 20170926
